FAERS Safety Report 11553423 (Version 1)
Quarter: 2015Q3

REPORT INFORMATION
  Report Type: Spontaneous
  Country: US (occurrence: None)
  Receive Date: 20150924
  Receipt Date: 20150924
  Transmission Date: 20151125
  Serious: Yes (Other)
  Sender: FDA-Public Use
  Company Number: None

PATIENT
  Age: 54 Year
  Sex: Female

DRUGS (1)
  1. LATANOPROST 0.005% [Suspect]
     Active Substance: LATANOPROST
     Dates: start: 20150709

REACTIONS (3)
  - Intraocular pressure increased [None]
  - Product substitution issue [None]
  - Therapeutic response changed [None]

NARRATIVE: CASE EVENT DATE: 20150709
